FAERS Safety Report 10398049 (Version 1)
Quarter: 2014Q3

REPORT INFORMATION
  Report Type: Spontaneous
  Country: FR (occurrence: None)
  Receive Date: 20140818
  Receipt Date: 20140818
  Transmission Date: 20150326
  Serious: Yes (Hospitalization, Other)
  Sender: FDA-Public Use
  Company Number: 2014COV00084

PATIENT
  Age: 27 Year
  Sex: Female

DRUGS (4)
  1. MESTINON ( PYRIDOSTIGMINE BROMIDE) [Concomitant]
  2. LEVOTHYROX ( LEVOTHYROXINE SODIUM) [Concomitant]
  3. ATROPINE SULFATE. [Concomitant]
     Active Substance: ATROPINE SULFATE
  4. PLAQUENIL [Suspect]
     Active Substance: HYDROXYCHLOROQUINE SULFATE
     Indication: SYSTEMIC LUPUS ERYTHEMATOSUS
     Route: 048
     Dates: start: 20140625, end: 20140708

REACTIONS (2)
  - Systemic lupus erythematosus [None]
  - Myasthenia gravis [None]

NARRATIVE: CASE EVENT DATE: 20140708
